FAERS Safety Report 5723638-8 (Version None)
Quarter: 2008Q2

REPORT INFORMATION
  Report Type: 
  Country: None (occurrence: None)
  Receive Date: 20080429
  Receipt Date: 20080429
  Transmission Date: 20081010
  Serious: Yes (Hospitalization)
  Sender: FDA-Public Use
  Company Number: None

PATIENT
  Age: 60 Year
  Weight: 111 kg

DRUGS (1)
  1. LITHIUM CARBONATE [Suspect]
     Indication: DEPRESSION
     Dosage: 900MG  PM  PO
     Route: 048
     Dates: start: 20080221, end: 20080317

REACTIONS (3)
  - ASTHENIA [None]
  - NAUSEA [None]
  - VOMITING [None]
